FAERS Safety Report 13497381 (Version 3)
Quarter: 2017Q3

REPORT INFORMATION
  Report Type: Spontaneous
  Country: JP (occurrence: JP)
  Receive Date: 20170428
  Receipt Date: 20170913
  Transmission Date: 20171127
  Serious: Yes (Life-Threatening, Hospitalization, Other)
  Sender: FDA-Public Use
  Company Number: JP-BAYER-2017-074869

PATIENT
  Age: 83 Year
  Sex: Male
  Weight: 54.9 kg

DRUGS (6)
  1. AVELOX [Suspect]
     Active Substance: MOXIFLOXACIN HYDROCHLORIDE
     Indication: PNEUMONIA BACTERIAL
     Dosage: UNK
     Dates: start: 20160704
  2. AVELOX [Suspect]
     Active Substance: MOXIFLOXACIN HYDROCHLORIDE
     Indication: PNEUMONIA BACTERIAL
     Dosage: 200 MG, BID
     Route: 048
     Dates: start: 20170414, end: 20170416
  3. FUROSEMIDE. [Concomitant]
     Active Substance: FUROSEMIDE
  4. LANSOPRAZOLE. [Concomitant]
     Active Substance: LANSOPRAZOLE
     Route: 048
  5. MAINTATE [Concomitant]
     Active Substance: BISOPROLOL FUMARATE
     Route: 048
  6. AVELOX [Suspect]
     Active Substance: MOXIFLOXACIN HYDROCHLORIDE
     Indication: PNEUMONIA BACTERIAL
     Dosage: UNK
     Dates: start: 20160114

REACTIONS (7)
  - Multiple organ dysfunction syndrome [Recovered/Resolved]
  - Disseminated intravascular coagulation [None]
  - Rhabdomyolysis [Recovered/Resolved]
  - Malaise [Recovered/Resolved]
  - Mobility decreased [Recovered/Resolved]
  - Liver disorder [Recovered/Resolved]
  - Renal impairment [Recovered/Resolved]

NARRATIVE: CASE EVENT DATE: 20170417
